FAERS Safety Report 7810116-5 (Version None)
Quarter: 2011Q4

REPORT INFORMATION
  Report Type: 
  Country: None (occurrence: None)
  Receive Date: 20111007
  Receipt Date: 20110923
  Transmission Date: 20120403
  Serious: Yes (Other)
  Sender: FDA-Public Use
  Company Number: 2011P1009015

PATIENT
  Age: 39 Year
  Sex: Female

DRUGS (2)
  1. LAMOTRIGINE [Suspect]
     Indication: ANXIETY
     Dosage: 25 MG;BID;PO
     Route: 048
     Dates: start: 20101201
  2. XANAX [Concomitant]

REACTIONS (5)
  - TOOTHACHE [None]
  - POST PROCEDURAL HAEMORRHAGE [None]
  - DENTAL CARIES [None]
  - PRODUCT SUBSTITUTION ISSUE [None]
  - TOOTH EXTRACTION [None]
